FAERS Safety Report 5078384-3 (Version None)
Quarter: 2006Q3

REPORT INFORMATION
  Report Type: 
  Country: None (occurrence: None)
  Receive Date: 20060811
  Receipt Date: 20060808
  Transmission Date: 20061208
  Serious: Yes (Hospitalization)
  Sender: FDA-Public Use
  Company Number: FR-GLAXOSMITHKLINE-B0433685A

PATIENT
  Age: 60 Year
  Sex: Male

DRUGS (4)
  1. ZINNAT [Suspect]
     Indication: EAR INFECTION
     Dosage: 2TAB PER DAY
     Route: 048
     Dates: start: 20060620, end: 20060623
  2. DOLIPRANE [Concomitant]
     Dosage: 1G THREE TIMES PER DAY
     Route: 048
     Dates: start: 20060620
  3. ASPIRIN [Concomitant]
     Route: 048
     Dates: start: 20060621, end: 20060622
  4. TOLEXINE [Concomitant]
     Route: 065
     Dates: start: 20060415, end: 20060501

REACTIONS (8)
  - ABDOMINAL PAIN [None]
  - ALANINE AMINOTRANSFERASE INCREASED [None]
  - ASPARTATE AMINOTRANSFERASE INCREASED [None]
  - HEPATOCELLULAR DAMAGE [None]
  - JAUNDICE HEPATOCELLULAR [None]
  - NAUSEA [None]
  - PRURITUS [None]
  - SKIN DISORDER [None]
